FAERS Safety Report 9769882 (Version 1)
Quarter: 2013Q4

REPORT INFORMATION
  Report Type: Spontaneous
  Country: US (occurrence: US)
  Receive Date: 20131218
  Receipt Date: 20131218
  Transmission Date: 20140711
  Serious: No
  Sender: FDA-Public Use
  Company Number: US-VERTEX PHARMACEUTICALS INC-AE-2011-000680

PATIENT
  Age: 44 Year
  Sex: Male
  Weight: 110.45 kg

DRUGS (8)
  1. INCIVEK [Suspect]
     Indication: HEPATITIS C
     Dates: start: 20110727
  2. PEGINTRON [Concomitant]
     Indication: HEPATITIS C
     Route: 058
     Dates: start: 20110727
  3. REBETOL [Concomitant]
     Indication: HEPATITIS C
     Dates: start: 20110727
  4. LISINOPRIL [Concomitant]
     Dates: start: 2010
  5. NORVASC [Concomitant]
     Dates: start: 2006
  6. GEMFIBROZIL [Concomitant]
     Dates: start: 2010
  7. ASA [Concomitant]
     Dates: start: 2010
  8. PRILOSEC [Concomitant]
     Dates: start: 2010

REACTIONS (5)
  - Influenza like illness [Recovered/Resolved]
  - Pyrexia [Recovered/Resolved]
  - Chills [Recovered/Resolved]
  - Anorectal discomfort [Not Recovered/Not Resolved]
  - Diarrhoea [Not Recovered/Not Resolved]
